FAERS Safety Report 4784646-7 (Version None)
Quarter: 2005Q3

REPORT INFORMATION
  Report Type: 
  Country: None (occurrence: None)
  Receive Date: 20050930
  Receipt Date: 20050913
  Transmission Date: 20060218
  Serious: Yes (Other)
  Sender: FDA-Public Use
  Company Number: ES-MERCK-0509ESP00017

PATIENT
  Sex: Female

DRUGS (2)
  1. [THERAPY UNSPECIFIED] [Concomitant]
     Route: 065
  2. SINGULAIR [Suspect]
     Indication: ASTHMA
     Route: 048

REACTIONS (3)
  - DYSTONIA [None]
  - LYMPHADENOPATHY [None]
  - SALIVARY GLAND ADENOMA [None]
